FAERS Safety Report 9781146 (Version 1)
Quarter: 2013Q4

REPORT INFORMATION
  Report Type: Spontaneous
  Country: TR (occurrence: TR)
  Receive Date: 20131224
  Receipt Date: 20131224
  Transmission Date: 20140711
  Serious: Yes (Hospitalization, Other)
  Sender: FDA-Public Use
  Company Number: TR-WATSON-2013-22833

PATIENT
  Age: 55 Year
  Sex: Male

DRUGS (2)
  1. BUPROPION HYDROCHLORIDE (WATSON LABORATORIES) [Suspect]
     Indication: EX-TOBACCO USER
     Dosage: 150 MG, DAILY
     Route: 048
  2. BUPROPION HYDROCHLORIDE (WATSON LABORATORIES) [Suspect]
     Indication: SMOKING CESSATION THERAPY

REACTIONS (1)
  - Thrombotic thrombocytopenic purpura [Recovered/Resolved]
